FAERS Safety Report 6117365-5 (Version None)
Quarter: 2009Q1

REPORT INFORMATION
  Report Type: 
  Country: None (occurrence: None)
  Receive Date: 20090314
  Receipt Date: 20090114
  Transmission Date: 20090719
  Serious: No
  Sender: FDA-Public Use
  Company Number: US-ABBOTT-09P-163-0497931-00

PATIENT
  Sex: Male
  Weight: 69.008 kg

DRUGS (5)
  1. HUMIRA [Suspect]
     Indication: CROHN'S DISEASE
     Route: 058
     Dates: start: 20080101, end: 20081101
  2. HUMIRA [Suspect]
     Indication: RHEUMATOID ARTHRITIS
     Route: 058
     Dates: start: 20081101
  3. IMURAN [Concomitant]
     Indication: CROHN'S DISEASE
     Dosage: UNKNOWN
  4. COLAZAL [Concomitant]
     Indication: CROHN'S DISEASE
     Dosage: UNKNOWN
  5. PREDNISONE [Concomitant]
     Indication: CROHN'S DISEASE
     Dosage: UNKNOWN

REACTIONS (3)
  - ARTHRALGIA [None]
  - INCORRECT DOSE ADMINISTERED [None]
  - PAIN IN EXTREMITY [None]
